FAERS Safety Report 6862435-7 (Version None)
Quarter: 2010Q3

REPORT INFORMATION
  Report Type: 
  Country: None (occurrence: None)
  Receive Date: 20100721
  Receipt Date: 20100713
  Transmission Date: 20110219
  Serious: Yes (Hospitalization)
  Sender: FDA-Public Use
  Company Number: US-ALEXION-A201000705

PATIENT
  Sex: Female

DRUGS (2)
  1. SOLIRIS [Suspect]
     Indication: PAROXYSMAL NOCTURNAL HAEMOGLOBINURIA
     Dosage: 600 MG QWK, UNK
     Route: 042
     Dates: start: 20100201, end: 20100201
  2. SOLIRIS [Suspect]
     Dosage: 900 MG Q2WKS, UNK
     Route: 042
     Dates: start: 20100301, end: 20100601

REACTIONS (1)
  - VAGINAL HAEMORRHAGE [None]
